FAERS Safety Report 21383241 (Version 1)
Quarter: 2022Q3

REPORT INFORMATION
  Report Type: Spontaneous
  Country: US (occurrence: US)
  Receive Date: 20220927
  Receipt Date: 20220927
  Transmission Date: 20221027
  Serious: No
  Sender: FDA-Public Use
  Company Number: US-SA-SAC20220923001024

PATIENT
  Age: 53 Year
  Sex: Male
  Weight: 83 kg

DRUGS (2)
  1. DUPIXENT [Suspect]
     Active Substance: DUPILUMAB
     Indication: Dermatitis atopic
     Dosage: 300 MG, QOW
     Route: 058
     Dates: end: 202112
  2. DUPIXENT [Suspect]
     Active Substance: DUPILUMAB
     Dosage: 300 MG (FREQUENCY: EVERY 19 DAYS)
     Route: 058
     Dates: end: 20220905

REACTIONS (10)
  - Diplopia [Unknown]
  - Lacrimation increased [Recovering/Resolving]
  - Eyelid margin crusting [Unknown]
  - Eye discharge [Unknown]
  - Ocular hyperaemia [Unknown]
  - Eyelids pruritus [Unknown]
  - Erythema of eyelid [Unknown]
  - Keratitis [Unknown]
  - Eye pruritus [Unknown]
  - Product use issue [Unknown]

NARRATIVE: CASE EVENT DATE: 20211201
